FAERS Safety Report 6456450-5 (Version None)
Quarter: 2009Q4

REPORT INFORMATION
  Report Type: 
  Country: None (occurrence: None)
  Receive Date: 20091125
  Receipt Date: 20091116
  Transmission Date: 20100525
  Serious: Yes (Hospitalization, Other)
  Sender: FDA-Public Use
  Company Number: US-ELI_LILLY_AND_COMPANY-US200911004304

PATIENT
  Sex: Female

DRUGS (7)
  1. FORTEO [Suspect]
     Indication: OSTEOPOROSIS
     Dosage: 20 UG, DAILY (1/D)
     Dates: start: 20091001, end: 20091108
  2. OXYGEN [Concomitant]
  3. HYDRALAZINE HCL [Concomitant]
  4. HYDROCHLOROTHIAZIDE [Concomitant]
  5. FUROSEMIDE [Concomitant]
  6. METHADONE HCL [Concomitant]
     Indication: PAIN
     Dosage: 10 MG, 3/D
  7. ROXICODONE [Concomitant]
     Dosage: 60 MG, EVERY 6 HRS

REACTIONS (13)
  - ABNORMAL DREAMS [None]
  - BLOOD PRESSURE INCREASED [None]
  - CARDIAC FAILURE CONGESTIVE [None]
  - FALL [None]
  - FAMILIAL MEDITERRANEAN FEVER [None]
  - HALLUCINATION [None]
  - HYPOTENSION [None]
  - MYOCARDIAL INFARCTION [None]
  - NONSPECIFIC REACTION [None]
  - PNEUMONIA [None]
  - PULMONARY CONGESTION [None]
  - RESPIRATORY FAILURE [None]
  - TREMOR [None]
